FAERS Safety Report 7969487 (Version 2)
Quarter: 2013Q3

REPORT INFORMATION
  Report Type: Report from Study
  Country: BE (occurrence: BE)
  Receive Date: 20110601
  Receipt Date: 20130815
  Transmission Date: 20140515
  Serious: Yes (Hospitalization)
  Sender: FDA-Public Use
  Company Number: BE-AMGEN-US089330

PATIENT
  Age: 68 Year
  Sex: Male
  Weight: 89 kg

DRUGS (10)
  1. ETANERCEPT [Suspect]
     Indication: RHEUMATOID ARTHRITIS
     Dosage: 25 MG, 2 TIMES/WK
     Route: 058
     Dates: start: 20030424, end: 20030913
  2. ETANERCEPT [Suspect]
     Dosage: 25 MG, 2 TIMES/WK
     Route: 058
     Dates: start: 20031010
  3. ETANERCEPT [Suspect]
     Dosage: 25 MG, 2 TIMES/WK
     Route: 058
     Dates: end: 20040620
  4. ETANERCEPT [Suspect]
     Dosage: 25 MG, 2 TIMES/WK
     Route: 058
     Dates: end: 20040715
  5. ETANERCEPT [Suspect]
     Dosage: 25 MG, 2 TIMES/WK
     Route: 058
     Dates: end: 20040815
  6. SINTROM [Concomitant]
     Dosage: UNK UNK, UNK
     Route: 048
     Dates: start: 20040721
  7. AMIODARONE [Concomitant]
     Dosage: UNK
     Route: 048
  8. DILTIAZEM [Concomitant]
     Dosage: UNK
     Route: 048
  9. METHOTREXATE [Concomitant]
     Dosage: UNK
     Route: 030
     Dates: start: 20030320
  10. DELTACORTRIL                       /00016201/ [Concomitant]
     Dosage: UNK
     Route: 048
     Dates: start: 20030320

REACTIONS (4)
  - Pulmonary embolism [Recovered/Resolved]
  - Bursitis infective [Recovered/Resolved]
  - Kidney infection [Recovered/Resolved]
  - Lung infection [Recovered/Resolved]
